FAERS Safety Report 10079121 (Version 3)
Quarter: 2014Q2

REPORT INFORMATION
  Report Type: Report from Study
  Country: US (occurrence: US)
  Receive Date: 20140415
  Receipt Date: 20140429
  Transmission Date: 20141212
  Serious: Yes (Death, Hospitalization, Other)
  Sender: FDA-Public Use
  Company Number: US-PFIZER INC-2014102501

PATIENT
  Age: 40 Year
  Sex: Female

DRUGS (4)
  1. IBUPROFEN [Suspect]
     Dosage: UNK
     Route: 048
  2. RISPERIDONE [Suspect]
     Dosage: UNK
     Route: 048
  3. IMIPRAMINE [Suspect]
     Dosage: UNK
     Route: 048
  4. BENZTROPINE MESYLATE [Suspect]
     Dosage: UNK
     Route: 048

REACTIONS (7)
  - Overdose [Fatal]
  - Coma [Fatal]
  - Electrocardiogram QT prolonged [Fatal]
  - Hypotension [Fatal]
  - Tachycardia [Fatal]
  - Sepsis [Fatal]
  - Acute respiratory distress syndrome [Fatal]
